FAERS Safety Report 5009616-5 (Version None)
Quarter: 2006Q2

REPORT INFORMATION
  Report Type: 
  Country: None (occurrence: None)
  Receive Date: 20060522
  Receipt Date: 20060509
  Transmission Date: 20061013
  Serious: Yes (Other)
  Sender: FDA-Public Use
  Company Number: 2006055414

PATIENT
  Age: 40 Year
  Sex: Male
  Weight: 76 kg

DRUGS (13)
  1. SUTENT [Suspect]
     Indication: RENAL CELL CARCINOMA STAGE UNSPECIFIED
     Dosage: 37.5 MG (M7.5 MG, DAILY FOR 4 WEEKS, 2 WEEKS OFF), ORAL
     Route: 048
     Dates: start: 20060111, end: 20060322
  2. HYDROMORPHONE HCL [Concomitant]
  3. GABAPENTIN [Concomitant]
  4. DOCUSATE SODIUM (DOCUSATE SODIUM) [Concomitant]
  5. SODIUM POLYSTYRENE SULFONATE 9SODIUM POLYSTYRENE SULFONATE) [Concomitant]
  6. NIFEDIPINE [Concomitant]
  7. CANDESARTAN CILEXETIL (CANDESARTAN CILEXETIL) [Concomitant]
  8. PRAVASTATIN [Concomitant]
  9. MULTIVITAMIN [Concomitant]
  10. EPOETIN ALFA (EPOETIN ALFA) [Concomitant]
  11. SEVELAMER HYDROCHLORIDE (SEVELAMER HYDROCHLORIDE) [Concomitant]
  12. LORAZEPAM (LORAZPEPAM) [Concomitant]
  13. PANTOPRAZOLE SODIUM [Concomitant]

REACTIONS (2)
  - BUDD-CHIARI SYNDROME [None]
  - HEPATOMEGALY [None]
